FAERS Safety Report 24867353 (Version 1)
Quarter: 2025Q1

REPORT INFORMATION
  Report Type: Spontaneous
  Country: US (occurrence: US)
  Receive Date: 20250121
  Receipt Date: 20250121
  Transmission Date: 20250409
  Serious: Yes (Other)
  Sender: ACCORD
  Company Number: US-MLMSERVICE-20250107-PI338188-00306-1

PATIENT
  Age: 50 Year
  Sex: Female

DRUGS (2)
  1. TACROLIMUS [Suspect]
     Active Substance: TACROLIMUS
     Indication: Immunosuppressant drug therapy
  2. PREDNISONE [Suspect]
     Active Substance: PREDNISONE
     Indication: Immunosuppressant drug therapy

REACTIONS (3)
  - Epstein-Barr virus infection [Unknown]
  - Smooth muscle cell neoplasm [Unknown]
  - Hepatic neoplasm [Unknown]
